FAERS Safety Report 24741814 (Version 1)
Quarter: 2024Q4

REPORT INFORMATION
  Report Type: Report from Study
  Country: FR (occurrence: FR)
  Receive Date: 20241217
  Receipt Date: 20241217
  Transmission Date: 20250115
  Serious: Yes (Other)
  Sender: AUROBINDO
  Company Number: FR-AUROBINDO-AUR-APL-2024-060135

PATIENT

DRUGS (2)
  1. ACYCLOVIR [Suspect]
     Active Substance: ACYCLOVIR
     Indication: Prophylaxis
     Dosage: 250 MG/M2 THREE TIMES PER DAY
     Route: 042
  2. VALACYCLOVIR HYDROCHLORIDE [Suspect]
     Active Substance: VALACYCLOVIR HYDROCHLORIDE
     Indication: Prophylaxis
     Dosage: UNK
     Route: 048

REACTIONS (5)
  - Middle cerebral artery stroke [Unknown]
  - Ophthalmic herpes zoster [Unknown]
  - Treatment noncompliance [Unknown]
  - Drug ineffective [Unknown]
  - Eyelid ptosis [Unknown]
